FAERS Safety Report 8583906-1 (Version None)
Quarter: 2012Q3

REPORT INFORMATION
  Report Type: 
  Country: None (occurrence: None)
  Receive Date: 20120810
  Receipt Date: 20120803
  Transmission Date: 20120928
  Serious: Yes (Hospitalization)
  Sender: FDA-Public Use
  Company Number: US-MERCK-1208USA002410

PATIENT

DRUGS (6)
  1. VORINOSTAT [Suspect]
     Indication: DIFFUSE LARGE B-CELL LYMPHOMA
     Dosage: 400 MG, QD ON DAYS 1-5
     Route: 048
     Dates: start: 20120716, end: 20120720
  2. RITUXIMAB [Suspect]
     Indication: DIFFUSE LARGE B-CELL LYMPHOMA
     Dosage: 375 MG/M2, ON DAY 3
     Route: 042
     Dates: start: 20120718, end: 20120718
  3. PREDNISONE TAB [Suspect]
     Indication: DIFFUSE LARGE B-CELL LYMPHOMA
     Dosage: 100 MG, QD ON DAYS 3-7
     Route: 048
     Dates: start: 20120718, end: 20120722
  4. VINCRISTINE SULFATE [Suspect]
     Indication: DIFFUSE LARGE B-CELL LYMPHOMA
     Dosage: 1.4 MG/M2, ON DAY 3
     Route: 042
     Dates: start: 20120718, end: 20120718
  5. DOXORUBICIN HYDROCHLORIDE [Suspect]
     Indication: DIFFUSE LARGE B-CELL LYMPHOMA
     Dosage: 50 MG/M2, ON DAY 3
     Route: 042
     Dates: start: 20120718, end: 20120718
  6. CYCLOPHOSPHAMIDE [Suspect]
     Indication: DIFFUSE LARGE B-CELL LYMPHOMA
     Dosage: 750 MG/M2, OVER 30-60 MINUTES ON DAY 3
     Route: 042
     Dates: start: 20120718, end: 20120718

REACTIONS (1)
  - FEBRILE NEUTROPENIA [None]
